FAERS Safety Report 8123988-4 (Version None)
Quarter: 2012Q1

REPORT INFORMATION
  Report Type: 
  Country: None (occurrence: None)
  Receive Date: 20120209
  Receipt Date: 20120201
  Transmission Date: 20120608
  Serious: Yes (Other)
  Sender: FDA-Public Use
  Company Number: CA-BAYER-2012-006858

PATIENT
  Sex: Female

DRUGS (1)
  1. MIRENA [Suspect]
     Dosage: 20 MCG/24HR, CONT
     Route: 015

REACTIONS (8)
  - WEIGHT INCREASED [None]
  - FIBROMYALGIA [None]
  - CHANGE OF BOWEL HABIT [None]
  - ARTHRALGIA [None]
  - CARPAL TUNNEL SYNDROME [None]
  - VAGINAL HAEMORRHAGE [None]
  - DEPRESSION [None]
  - FATIGUE [None]
